FAERS Safety Report 19497296 (Version 2)
Quarter: 2021Q4

REPORT INFORMATION
  Report Type: Spontaneous
  Country: US (occurrence: US)
  Receive Date: 20210706
  Receipt Date: 20211118
  Transmission Date: 20220303
  Serious: Yes (Hospitalization, Other)
  Sender: FDA-Public Use
  Company Number: US-INCYTE CORPORATION-2021IN005826

PATIENT

DRUGS (2)
  1. JAKAFI [Suspect]
     Active Substance: RUXOLITINIB
     Dosage: 20MG AND 10MG BID
     Route: 048
     Dates: start: 20200309
  2. JAKAFI [Suspect]
     Active Substance: RUXOLITINIB
     Dosage: 20 MILLIGRAM IN THE MORNING, 10 MILLIGRAM IN THE EVENING
     Route: 048
     Dates: start: 202006

REACTIONS (4)
  - Intestinal obstruction [Recovered/Resolved]
  - Pneumonia [Unknown]
  - Platelet count decreased [Unknown]
  - Nausea [Recovering/Resolving]

NARRATIVE: CASE EVENT DATE: 20210621
